FAERS Safety Report 8617187-7 (Version None)
Quarter: 2012Q3

REPORT INFORMATION
  Report Type: 
  Country: None (occurrence: None)
  Receive Date: 20120823
  Receipt Date: 20120810
  Transmission Date: 20120928
  Serious: No
  Sender: FDA-Public Use
  Company Number: US-ASTRAZENECA-2012SE55254

PATIENT
  Age: 76 Year
  Sex: Female

DRUGS (2)
  1. SYMBICORT [Suspect]
     Route: 055
  2. SPIRIVA [Concomitant]

REACTIONS (3)
  - DRUG DOSE OMISSION [None]
  - ABASIA [None]
  - PULMONARY FUNCTION TEST ABNORMAL [None]
